FAERS Safety Report 16767802 (Version 3)
Quarter: 2022Q1

REPORT INFORMATION
  Report Type: Spontaneous
  Country: DE (occurrence: DE)
  Receive Date: 20190903
  Receipt Date: 20220210
  Transmission Date: 20220424
  Serious: Yes (Other)
  Sender: FDA-Public Use
  Company Number: DE-MYLANLABS-2019M1081835

PATIENT
  Age: 54 Year
  Sex: Male
  Weight: 78 kg

DRUGS (24)
  1. VALSARTAN [Suspect]
     Active Substance: VALSARTAN
     Indication: Hypertension
     Dosage: 160 MILLIGRAM, QD (ONCE IN THE MORNING)
     Route: 048
     Dates: start: 2015, end: 201807
  2. VALSARTAN [Suspect]
     Active Substance: VALSARTAN
     Indication: Hypertension
     Dosage: UNK
  3. VALSARTAN [Suspect]
     Active Substance: VALSARTAN
     Indication: Hypertension
     Dosage: UNK
  4. CANDESARTAN [Suspect]
     Active Substance: CANDESARTAN
     Indication: Product used for unknown indication
     Dosage: UNK
  5. CANDESARTAN [Suspect]
     Active Substance: CANDESARTAN
     Indication: Product used for unknown indication
     Dosage: UNK
  6. PREDNISONE [Concomitant]
     Active Substance: PREDNISONE
     Dosage: 1 AT MORNING
  7. ASPIRIN [Concomitant]
     Active Substance: ASPIRIN
     Dosage: 1 AT MORNING
  8. AMLODIPIN ABZ [Concomitant]
     Dosage: 1 AT NOON
  9. CANDESARTAN CILEXETIL [Concomitant]
     Active Substance: CANDESARTAN CILEXETIL
     Dosage: 1 EVENING
  10. METOPROLOL SUCCINATE [Concomitant]
     Active Substance: METOPROLOL SUCCINATE
     Dosage: 1 EVENING
  11. Nepresol [Concomitant]
     Dosage: 2 EVENING
  12. DOXAZOSIN [Concomitant]
     Active Substance: DOXAZOSIN MESYLATE
     Dosage: 2 EVENING
  13. PRAVASTATIN 1A PHARMA GMBH [Concomitant]
     Dosage: 1 EVENING
  14. CPS [Concomitant]
     Dosage: UP TO 8 SACHETS PER DAY TO THE MEAL
  15. RENVELA [Concomitant]
     Active Substance: SEVELAMER CARBONATE
     Dosage: 2 IN MORNING
  16. CALCITRIOL [Concomitant]
     Active Substance: CALCITRIOL
     Dosage: 2 IN MORNING
  17. RENVELA [Concomitant]
     Active Substance: SEVELAMER CARBONATE
     Dosage: UNK
  18. CHOLECALCIFEROL [Concomitant]
     Active Substance: CHOLECALCIFEROL
     Dosage: UNK
  19. SODIUM BICARBONATE [Concomitant]
     Active Substance: SODIUM BICARBONATE
     Dosage: 2-0-2 SATURDAY AND SUNDAY
  20. DREISAVIT N [Concomitant]
     Dosage: 1 EVENING
  21. METAMIZOLE SODIUM [Concomitant]
     Active Substance: METAMIZOLE SODIUM
     Dosage: UNK, PRN
  22. PANTOPRAZOL MICRO [Concomitant]
     Dosage: 1 MORNING 1 EVENING
  23. RETACRIT [Concomitant]
     Active Substance: EPOETIN ALFA-EPBX
     Dosage: MONDAY AND FRIDAY, INTRAVENOUS
  24. SERTRALINE HYDROCHLORIDE [Concomitant]
     Active Substance: SERTRALINE HYDROCHLORIDE
     Indication: Depression
     Dosage: UNK

REACTIONS (9)
  - Mental impairment [Not Recovered/Not Resolved]
  - Anhedonia [Unknown]
  - Decreased interest [Unknown]
  - Job dissatisfaction [Unknown]
  - Depression [Unknown]
  - Anxiety disorder [Unknown]
  - Quality of life decreased [Not Recovered/Not Resolved]
  - Fear of disease [Not Recovered/Not Resolved]
  - Product contamination [Unknown]

NARRATIVE: CASE EVENT DATE: 20180101
